FAERS Safety Report 6944382-5 (Version None)
Quarter: 2010Q3

REPORT INFORMATION
  Report Type: 
  Country: None (occurrence: None)
  Receive Date: 20100827
  Receipt Date: 20100819
  Transmission Date: 20110219
  Serious: No
  Sender: FDA-Public Use
  Company Number: US-US-EMD SERONO, INC.-7009399

PATIENT
  Sex: Female
  Weight: 43 kg

DRUGS (3)
  1. REBIF [Suspect]
     Indication: MULTIPLE SCLEROSIS
     Route: 058
     Dates: start: 20090706, end: 20100601
  2. KLONOPIN [Concomitant]
     Indication: MUSCLE SPASMS
  3. NEURONTIN [Concomitant]
     Indication: SENSORY DISTURBANCE

REACTIONS (8)
  - ABDOMINAL DISCOMFORT [None]
  - DECREASED APPETITE [None]
  - FEELING ABNORMAL [None]
  - HEPATIC ENZYME INCREASED [None]
  - INFLUENZA LIKE ILLNESS [None]
  - LYMPHOEDEMA [None]
  - MULTIPLE SCLEROSIS RELAPSE [None]
  - WEIGHT DECREASED [None]
